FAERS Safety Report 6454640-9 (Version None)
Quarter: 2009Q4

REPORT INFORMATION
  Report Type: 
  Country: None (occurrence: None)
  Receive Date: 20091124
  Receipt Date: 20091119
  Transmission Date: 20100525
  Serious: Yes (Hospitalization)
  Sender: FDA-Public Use
  Company Number: DE-SANOFI-AVENTIS-2009SA002979

PATIENT
  Age: 67 Year
  Sex: Female
  Weight: 83 kg

DRUGS (3)
  1. DOCETAXEL [Suspect]
     Indication: BREAST CANCER
     Route: 041
     Dates: start: 20091112, end: 20091112
  2. FORTECORTIN [Concomitant]
     Indication: PROPHYLAXIS
     Route: 042
     Dates: start: 20091112, end: 20091112
  3. ONDANSETRON [Concomitant]
     Indication: PROPHYLAXIS
     Route: 042
     Dates: start: 20091112, end: 20091112

REACTIONS (1)
  - CIRCULATORY COLLAPSE [None]
